FAERS Safety Report 5336510-2 (Version None)
Quarter: 2007Q2

REPORT INFORMATION
  Report Type: 
  Country: None (occurrence: None)
  Receive Date: 20070523
  Receipt Date: 20070507
  Transmission Date: 20071010
  Serious: Yes (Other)
  Sender: FDA-Public Use
  Company Number: 2007JP001178

PATIENT
  Age: 38 Year
  Sex: Male
  Weight: 60.8 kg

DRUGS (9)
  1. PROGRAF [Suspect]
     Indication: STEM CELL TRANSPLANT
     Dosage: 1.8 MG, CONTINUOUS, IV DRIP
     Route: 041
     Dates: start: 20060629, end: 20060703
  2. OMEGACIN(BIAPENEM) INJECTION [Suspect]
     Indication: STAPHYLOCOCCAL INFECTION
     Dosage: 0.3 G, QID, IV DRIP
     Route: 041
     Dates: start: 20060525, end: 20060722
  3. VISCOLEX(CARBOCISTEINE) INJECTION [Suspect]
     Indication: HERPES SIMPLEX
     Dosage: 250 MG, TID, IV DRIP
     Route: 041
     Dates: start: 20060627, end: 20060714
  4. SANDIMMUNE [Suspect]
     Indication: STEM CELL TRANSPLANT
     Dosage: 60 MG, CONTINUOUS, IV DRIP
     Route: 041
     Dates: start: 20060710, end: 20061102
  5. DIFLUCAN (FLUCONAZOLE) PER ORAL NOS [Concomitant]
  6. TARGOCID [Concomitant]
  7. SOLU-CORTEF (HYDROCORTISONE SODIUM SUCCINATE) INJECTION [Concomitant]
  8. PREDNISOLONE [Concomitant]
  9. NEUTROGIN (LENOGRASTIM) INJECTION [Concomitant]

REACTIONS (5)
  - CONVULSION [None]
  - HYPOMAGNESAEMIA [None]
  - MYELODYSPLASTIC SYNDROME [None]
  - NEOPLASM RECURRENCE [None]
  - REVERSIBLE POSTERIOR LEUKOENCEPHALOPATHY SYNDROME [None]
